FAERS Safety Report 14455329 (Version 1)
Quarter: 2018Q1

REPORT INFORMATION
  Report Type: Spontaneous
  Country: FR (occurrence: FR)
  Receive Date: 20180129
  Receipt Date: 20180129
  Transmission Date: 20180509
  Serious: Yes (Other)
  Sender: FDA-Public Use
  Company Number: FR-TEVA-2018-FR-850314

PATIENT
  Age: 18 Year
  Sex: Male

DRUGS (3)
  1. DERINOX, SOLUTION POUR PULV?RISATION NASALE [Concomitant]
     Indication: SINUSITIS
     Route: 045
  2. IBUPROFEN. [Suspect]
     Active Substance: IBUPROFEN
     Indication: SINUSITIS
     Route: 048
     Dates: start: 2017, end: 2017
  3. AMOXICILLIN. [Suspect]
     Active Substance: AMOXICILLIN
     Indication: SINUSITIS
     Route: 048
     Dates: start: 2017, end: 2017

REACTIONS (1)
  - Anaphylactic shock [Recovered/Resolved]

NARRATIVE: CASE EVENT DATE: 2017
